FAERS Safety Report 8145144-6 (Version None)
Quarter: 2012Q1

REPORT INFORMATION
  Report Type: 
  Country: None (occurrence: None)
  Receive Date: 20120217
  Receipt Date: 20120214
  Transmission Date: 20120608
  Serious: Yes (Life-Threatening, Hospitalization)
  Sender: FDA-Public Use
  Company Number: PHHY2011JP68813

PATIENT
  Sex: Male

DRUGS (40)
  1. CLOZARIL [Suspect]
     Dosage: 250 MG, UNK
     Route: 048
     Dates: start: 20110519, end: 20110525
  2. CLOZARIL [Suspect]
     Dosage: 325 MG, UNK
     Route: 048
     Dates: start: 20110623, end: 20110629
  3. MOSAPRAMINE HYDROCHLORIDE [Concomitant]
     Route: 048
  4. LITHIUM CARBONATE [Concomitant]
     Dosage: 800 MG, UNK
     Route: 048
     Dates: end: 20110801
  5. PROMETHAZINE HYDROCHLORIDE [Concomitant]
     Dosage: 25 MG, UNK
     Route: 048
     Dates: start: 20110304, end: 20110519
  6. CLONAZEPAM [Concomitant]
     Indication: SCHIZOPHRENIA, DISORGANISED TYPE
     Dosage: 3 MG, UNK
     Route: 048
     Dates: start: 20110322, end: 20110801
  7. LORAZEPAM [Concomitant]
     Indication: SCHIZOPHRENIA, DISORGANISED TYPE
     Dosage: 2 MG, UNK
     Route: 048
     Dates: start: 20110801
  8. CLOZARIL [Suspect]
     Dosage: 125 MG, UNK
     Route: 048
     Dates: start: 20110411, end: 20110413
  9. CLOZARIL [Suspect]
     Dosage: 275 MG, UNK
     Route: 048
     Dates: start: 20110526, end: 20110601
  10. ZOTEPINE [Concomitant]
     Route: 048
  11. PROPERICIAZINE [Concomitant]
  12. SENNOSIDE [Concomitant]
     Dosage: 24 MG,
     Route: 048
     Dates: start: 20110810
  13. LITHIUM CARBONATE [Concomitant]
     Indication: SCHIZOPHRENIA, DISORGANISED TYPE
     Dosage: 400 MG, UNK
     Route: 048
     Dates: start: 20110503
  14. CLOZARIL [Suspect]
     Dosage: 50 MG, UNK
     Route: 048
     Dates: start: 20110401, end: 20110403
  15. CLOZARIL [Suspect]
     Dosage: 100 MG, UNK
     Route: 048
     Dates: start: 20110407, end: 20110410
  16. CLOZARIL [Suspect]
     Dosage: 375 MG, UNK
     Route: 048
     Dates: start: 20110707, end: 20110720
  17. HALOPERIDOL [Concomitant]
     Route: 048
  18. LITHIUM CARBONATE [Concomitant]
     Dosage: 600 MG, UNK
     Route: 048
  19. CLOZARIL [Suspect]
     Dosage: 75 MG, UNK
     Route: 048
     Dates: start: 20110404, end: 20110406
  20. MAGNESIUM OXIDE [Concomitant]
     Dosage: 1000 MG,
     Route: 048
  21. NITRAZEPAM [Concomitant]
     Indication: SCHIZOPHRENIA, DISORGANISED TYPE
     Dosage: 10 MG, UNK
     Route: 048
     Dates: start: 20110322, end: 20110801
  22. CLOZARIL [Suspect]
     Dosage: 300 MG, UNK
     Route: 048
     Dates: start: 20110602, end: 20110622
  23. SULPIRIDE [Concomitant]
     Route: 048
  24. RISPERIDONE [Concomitant]
     Route: 048
  25. OLANZAPINE [Concomitant]
     Route: 048
  26. QUETIAPINE FUMARATE [Concomitant]
     Route: 048
  27. BLONANSERIN [Concomitant]
     Route: 048
  28. CLOZARIL [Suspect]
     Dosage: 25 MG, UNK
     Route: 048
     Dates: start: 20110331, end: 20110331
  29. CLOZARIL [Suspect]
     Dosage: 350 MG, UNK
     Route: 048
     Dates: start: 20110630, end: 20110706
  30. SULTOPRIDE HYDROCHLORIDE [Concomitant]
     Route: 048
  31. CLOZARIL [Suspect]
     Dosage: 200 MG, UNK
     Route: 048
     Dates: start: 20110421, end: 20110518
  32. CLOZARIL [Suspect]
     Dosage: 400 MG, UNK
     Route: 048
     Dates: start: 20110721, end: 20110727
  33. FLUPHENAZINE HCL [Concomitant]
  34. CLOZARIL [Suspect]
     Indication: SCHIZOPHRENIA, DISORGANISED TYPE
     Dosage: 12.5 MG, UNK
     Route: 048
     Dates: end: 20110330
  35. CLOZARIL [Suspect]
     Dosage: 150 MG, UNK
     Route: 048
     Dates: start: 20110414, end: 20110417
  36. CLOZARIL [Suspect]
     Dosage: 175 MG, UNK
     Route: 048
     Dates: start: 20110418, end: 20110420
  37. PERPHENAZINE [Concomitant]
     Route: 048
  38. SPIPERONE [Concomitant]
     Route: 048
  39. PEROSPIRONE HYDROCHLORIDE HYDRATE [Concomitant]
     Route: 048
  40. ARIPIPRAZOLE [Concomitant]
     Route: 048

REACTIONS (5)
  - C-REACTIVE PROTEIN INCREASED [None]
  - AGRANULOCYTOSIS [None]
  - NEUTROPENIA [None]
  - LEUKOPENIA [None]
  - PYREXIA [None]
